FAERS Safety Report 10226962 (Version 1)
Quarter: 2014Q2

REPORT INFORMATION
  Report Type: Spontaneous
  Country: NL (occurrence: NL)
  Receive Date: 20140610
  Receipt Date: 20140610
  Transmission Date: 20141212
  Serious: Yes (Death)
  Sender: FDA-Public Use
  Company Number: NL-AMGEN-NLDSP2014041759

PATIENT
  Age: 67 Year
  Sex: Female

DRUGS (1)
  1. XGEVA [Suspect]
     Indication: PROPHYLAXIS
     Dosage: 70 MG/ML, Q4WK
     Route: 058
     Dates: start: 20120519

REACTIONS (1)
  - Death [Fatal]
